FAERS Safety Report 4724581-3 (Version None)
Quarter: 2005Q3

REPORT INFORMATION
  Report Type: 
  Country: None (occurrence: None)
  Receive Date: 20050726
  Receipt Date: 20050718
  Transmission Date: 20060218
  Serious: Yes (Other)
  Sender: FDA-Public Use
  Company Number: DE-JNJFOC-20050703404

PATIENT
  Sex: Female

DRUGS (1)
  1. DURAGESIC-100 [Suspect]
     Route: 062

REACTIONS (4)
  - LIVER FUNCTION TEST ABNORMAL [None]
  - PARALYSIS [None]
  - SOMNOLENCE [None]
  - VISUAL DISTURBANCE [None]
